FAERS Safety Report 19619839 (Version 1)
Quarter: 2021Q3

REPORT INFORMATION
  Report Type: Spontaneous
  Country: US (occurrence: US)
  Receive Date: 20210728
  Receipt Date: 20210728
  Transmission Date: 20211014
  Serious: Yes (Other)
  Sender: FDA-Public Use
  Company Number: US-ROCHE-2677788

PATIENT
  Sex: Female

DRUGS (3)
  1. TUKYSA [Suspect]
     Active Substance: TUCATINIB
     Indication: NEOPLASM MALIGNANT
     Route: 065
  2. XELODA [Suspect]
     Active Substance: CAPECITABINE
     Indication: NEOPLASM MALIGNANT
     Route: 048
  3. ZYLET [Concomitant]
     Active Substance: LOTEPREDNOL ETABONATE\TOBRAMYCIN

REACTIONS (7)
  - Pneumonia [Unknown]
  - Stomatitis [Unknown]
  - Dehydration [Unknown]
  - Candida infection [Unknown]
  - Dysphagia [Unknown]
  - Palmar-plantar erythrodysaesthesia syndrome [Unknown]
  - Speech disorder [Unknown]
